FAERS Safety Report 8385187-0 (Version None)
Quarter: 2012Q2

REPORT INFORMATION
  Report Type: 
  Country: None (occurrence: None)
  Receive Date: 20120525
  Receipt Date: 20120518
  Transmission Date: 20120825
  Serious: Yes (Hospitalization, Other)
  Sender: FDA-Public Use
  Company Number: PT-BIOGENIDEC-2010BI018430

PATIENT
  Age: 50 Year
  Sex: Female

DRUGS (4)
  1. MULTI-VITAMINS [Concomitant]
  2. MUSCLE RELAXANTS (NOS) [Concomitant]
  3. TYSABRI [Suspect]
     Indication: MULTIPLE SCLEROSIS
     Route: 042
     Dates: start: 20081027, end: 20100215
  4. ANTIDEPRESSANTS (NOS) [Concomitant]

REACTIONS (1)
  - COLON CANCER [None]
